FAERS Safety Report 12640927 (Version 1)
Quarter: 2016Q3

REPORT INFORMATION
  Report Type: Spontaneous
  Country: US (occurrence: US)
  Receive Date: 20160810
  Receipt Date: 20160810
  Transmission Date: 20161109
  Serious: Yes (Other)
  Sender: FDA-Public Use
  Company Number: US-GLAXOSMITHKLINE-US2016113330

PATIENT
  Age: 63 Year
  Sex: Female

DRUGS (29)
  1. FOLINIC ACID [Suspect]
     Active Substance: LEUCOVORIN
     Indication: RETROPERITONEAL CANCER
     Dates: end: 201005
  2. IRINOTECAN [Suspect]
     Active Substance: IRINOTECAN
     Indication: METASTASES TO PERITONEUM
     Dates: start: 201105
  3. IRINOTECAN [Suspect]
     Active Substance: IRINOTECAN
     Dosage: ONCE IN 3 WEEKS
  4. LIPITOR [Concomitant]
     Active Substance: ATORVASTATIN CALCIUM
  5. MECLIZINE [Concomitant]
     Active Substance: MECLIZINE HYDROCHLORIDE
  6. ZANTAC [Concomitant]
     Active Substance: RANITIDINE HYDROCHLORIDE
  7. FOLINIC ACID [Suspect]
     Active Substance: LEUCOVORIN
     Indication: METASTASES TO PERITONEUM
     Dates: start: 201105
  8. HYDROCODONE [Concomitant]
     Active Substance: HYDROCODONE
  9. LORAZEPAM. [Concomitant]
     Active Substance: LORAZEPAM
  10. CITALOPRAM [Concomitant]
     Active Substance: CITALOPRAM HYDROBROMIDE
  11. AMITRIPTYLINE [Concomitant]
     Active Substance: AMITRIPTYLINE
  12. FLUOROURACIL. [Suspect]
     Active Substance: FLUOROURACIL
     Indication: RETROPERITONEAL CANCER
     Dates: end: 201005
  13. CELECOXIB. [Concomitant]
     Active Substance: CELECOXIB
  14. FLUOROURACIL. [Suspect]
     Active Substance: FLUOROURACIL
     Indication: METASTASES TO PERITONEUM
     Dates: start: 201105
  15. FOLINIC ACID [Suspect]
     Active Substance: LEUCOVORIN
     Indication: ADENOCARCINOMA OF APPENDIX
     Dates: start: 2007
  16. IRINOTECAN [Suspect]
     Active Substance: IRINOTECAN
     Dosage: ONCE IN 2 WEEKS
  17. AVASTIN [Suspect]
     Active Substance: BEVACIZUMAB
     Indication: RETROPERITONEAL CANCER
     Dates: end: 201005
  18. ZOLPIDEM [Concomitant]
     Active Substance: ZOLPIDEM\ZOLPIDEM TARTRATE
  19. LANSOPRAZOLE. [Suspect]
     Active Substance: LANSOPRAZOLE
  20. VITAMIN D [Concomitant]
     Active Substance: CHOLECALCIFEROL
  21. METOPROLOL. [Concomitant]
     Active Substance: METOPROLOL
  22. IRINOTECAN [Suspect]
     Active Substance: IRINOTECAN
     Indication: ADENOCARCINOMA OF APPENDIX
     Dates: start: 2007
  23. IRINOTECAN [Suspect]
     Active Substance: IRINOTECAN
     Indication: RETROPERITONEAL CANCER
     Dates: end: 201005
  24. XELODA [Suspect]
     Active Substance: CAPECITABINE
     Indication: RETROPERITONEAL CANCER
  25. AVASTIN [Suspect]
     Active Substance: BEVACIZUMAB
     Indication: ADENOCARCINOMA OF APPENDIX
     Dates: start: 2007
  26. BENADRYL [Concomitant]
     Active Substance: DIPHENHYDRAMINE HYDROCHLORIDE
  27. METFORMIN [Suspect]
     Active Substance: METFORMIN HYDROCHLORIDE
  28. AVASTIN [Suspect]
     Active Substance: BEVACIZUMAB
     Indication: METASTASES TO PERITONEUM
     Dates: start: 201210
  29. ZOFRAN [Concomitant]
     Active Substance: ONDANSETRON HYDROCHLORIDE

REACTIONS (2)
  - Diarrhoea [Not Recovered/Not Resolved]
  - Hypomagnesaemia [Not Recovered/Not Resolved]
